FAERS Safety Report 5164975-8 (Version None)
Quarter: 2006Q4

REPORT INFORMATION
  Report Type: 
  Country: None (occurrence: None)
  Receive Date: 20061124
  Receipt Date: 20061106
  Transmission Date: 20070319
  Serious: Yes (Other)
  Sender: FDA-Public Use
  Company Number: 2006142162

PATIENT
  Sex: Female

DRUGS (1)
  1. REVATIO [Suspect]
     Indication: PULMONARY HYPERTENSION
     Dosage: 200 MG DAILY, ORAL
     Route: 048
     Dates: start: 20030101

REACTIONS (2)
  - FATIGUE [None]
  - OXYGEN SATURATION DECREASED [None]
